FAERS Safety Report 6057191-9 (Version None)
Quarter: 2009Q1

REPORT INFORMATION
  Report Type: 
  Country: None (occurrence: None)
  Receive Date: 20090126
  Receipt Date: 20090126
  Transmission Date: 20090719
  Serious: Yes (Other)
  Sender: FDA-Public Use
  Company Number: None

PATIENT
  Age: 35 Year
  Sex: Female
  Weight: 65.7716 kg

DRUGS (2)
  1. METHOTREXATE [Suspect]
     Indication: ARTHRITIS
     Dosage: 10 MG 1 PER WEEK PO
     Route: 048
     Dates: start: 20081101, end: 20090123
  2. METHOTREXATE [Suspect]
     Indication: SJOGREN'S SYNDROME
     Dosage: 10 MG 1 PER WEEK PO
     Route: 048
     Dates: start: 20081101, end: 20090123

REACTIONS (4)
  - ANGER [None]
  - DEPRESSION [None]
  - FEELING ABNORMAL [None]
  - MOOD ALTERED [None]
